FAERS Safety Report 21304307 (Version 1)
Quarter: 2022Q3

REPORT INFORMATION
  Report Type: Spontaneous
  Country: US (occurrence: None)
  Receive Date: 20220907
  Receipt Date: 20220907
  Transmission Date: 20221027
  Serious: No
  Sender: FDA-Public Use
  Company Number: US-ARIS GLOBAL-202107-1227

PATIENT
  Age: 82 Year
  Sex: Female

DRUGS (5)
  1. OXERVATE [Suspect]
     Active Substance: CENEGERMIN-BKBJ
     Indication: Neurotrophic keratopathy
     Route: 047
     Dates: start: 20210708, end: 20210719
  2. OXERVATE [Suspect]
     Active Substance: CENEGERMIN-BKBJ
     Indication: Ulcerative keratitis
  3. ACYCLOVIR [Concomitant]
     Active Substance: ACYCLOVIR
     Route: 048
  4. PREDNISOLONE [Concomitant]
     Active Substance: PREDNISOLONE
     Route: 061
  5. OFLOXACIN [Concomitant]
     Active Substance: OFLOXACIN
     Route: 061

REACTIONS (2)
  - Eye infection viral [Recovering/Resolving]
  - Eye ulcer [Recovering/Resolving]

NARRATIVE: CASE EVENT DATE: 20210719
